FAERS Safety Report 4632080-2 (Version None)
Quarter: 2005Q2

REPORT INFORMATION
  Report Type: 
  Country: None (occurrence: None)
  Receive Date: 20050331
  Receipt Date: 20040720
  Transmission Date: 20051028
  Serious: Yes (Other)
  Sender: FDA-Public Use
  Company Number: 200413562BCC

PATIENT
  Age: 52 Year
  Sex: Female
  Weight: 48.5349 kg

DRUGS (3)
  1. ALEVE (CAPLET) [Suspect]
     Indication: ARTHRITIS
     Dosage: 220 MG, ONCE, ORAL
     Route: 048
     Dates: start: 20040718
  2. MULTIVITAMIN AND MINERAL SUPPLEMENT [Concomitant]
  3. CALTRATE [Concomitant]

REACTIONS (8)
  - ASTHENOPIA [None]
  - DYSPNOEA [None]
  - EYE PAIN [None]
  - EYE SWELLING [None]
  - HYPERSENSITIVITY [None]
  - OEDEMA PERIPHERAL [None]
  - PAIN IN EXTREMITY [None]
  - URTICARIA [None]
